FAERS Safety Report 5695826-0 (Version None)
Quarter: 2008Q2

REPORT INFORMATION
  Report Type: 
  Country: None (occurrence: None)
  Receive Date: 20080407
  Receipt Date: 20080327
  Transmission Date: 20081010
  Serious: Yes (Hospitalization)
  Sender: FDA-Public Use
  Company Number: US-JNJFOC-20080400037

PATIENT
  Sex: Female
  Weight: 120.88 kg

DRUGS (6)
  1. DURAGESIC-100 [Suspect]
     Indication: NEUROPATHY PERIPHERAL
     Route: 062
  2. PERCODAN-DEMI [Suspect]
     Indication: BREAKTHROUGH PAIN
     Route: 048
  3. SINEMET CR [Concomitant]
     Indication: PARKINSON'S DISEASE
     Dosage: 25/100MG
     Route: 048
  4. CELEBREX [Concomitant]
     Indication: INFLAMMATION
     Route: 048
  5. POTASSIUM CHLORIDE [Concomitant]
     Route: 048
  6. LASIX [Concomitant]
     Indication: FLUID RETENTION
     Dosage: AS NEEDED
     Route: 048

REACTIONS (15)
  - ADVERSE DRUG REACTION [None]
  - ALOPECIA [None]
  - ANOREXIA [None]
  - ARTHROPATHY [None]
  - BLISTER [None]
  - CHEST PAIN [None]
  - DRUG INEFFECTIVE [None]
  - DRY SKIN [None]
  - INCORRECT DRUG ADMINISTRATION DURATION [None]
  - LOSS OF CONSCIOUSNESS [None]
  - LOWER LIMB FRACTURE [None]
  - PAIN [None]
  - THERAPEUTIC RESPONSE DECREASED [None]
  - THROMBOSIS [None]
  - WEIGHT DECREASED [None]
